FAERS Safety Report 7454461-4 (Version None)
Quarter: 2011Q2

REPORT INFORMATION
  Report Type: 
  Country: None (occurrence: None)
  Receive Date: 20110425
  Receipt Date: 20110414
  Transmission Date: 20111010
  Serious: Yes (Hospitalization)
  Sender: FDA-Public Use
  Company Number: 2009AC000369

PATIENT
  Age: 57 Year
  Sex: Female

DRUGS (22)
  1. DIGOXIN [Suspect]
     Indication: CORONARY ARTERY DISEASE
     Dosage: 0.25 MG;QD;PO
     Route: 048
     Dates: start: 20060301, end: 20080318
  2. NITROGLYCERIN [Concomitant]
  3. CLONIDINE [Concomitant]
  4. AMILORIDE HYDROCHLORIDE [Concomitant]
  5. POTASSIUM CHLORIDE [Concomitant]
  6. ALLOPURINOL [Concomitant]
  7. PRAVASTATIN [Concomitant]
  8. HUMULIN INSULIN [Concomitant]
  9. PRAVACHOL [Concomitant]
  10. DYAZIDE [Concomitant]
  11. LASIX [Concomitant]
  12. LISINOPRIL [Concomitant]
  13. MAXZIDE [Concomitant]
  14. PEPCID [Concomitant]
  15. NORVASC [Concomitant]
  16. ALTACE [Concomitant]
  17. COZAAR [Concomitant]
  18. METOPROLOL SUCCINATE [Concomitant]
  19. ASPIRIN [Concomitant]
  20. DARVOCET-N 100 [Concomitant]
  21. DIGOXIN [Suspect]
     Dosage: 250 UG;PO
     Route: 048
     Dates: start: 20080229
  22. BENAZAPRINL [Concomitant]

REACTIONS (24)
  - ECONOMIC PROBLEM [None]
  - ABDOMINAL PAIN [None]
  - RENAL FAILURE [None]
  - CARDIOACTIVE DRUG LEVEL ABOVE THERAPEUTIC [None]
  - RENAL ARTERY ARTERIOSCLEROSIS [None]
  - UNEVALUABLE EVENT [None]
  - BRADYCARDIA [None]
  - TOXICITY TO VARIOUS AGENTS [None]
  - ABDOMINAL PAIN UPPER [None]
  - SINUS BRADYCARDIA [None]
  - ARTHRALGIA [None]
  - INJURY [None]
  - VENTRICULAR HYPERTROPHY [None]
  - GALLOP RHYTHM PRESENT [None]
  - CARDIAC FAILURE CONGESTIVE [None]
  - HYPOMAGNESAEMIA [None]
  - AORTIC VALVE INCOMPETENCE [None]
  - PAIN IN EXTREMITY [None]
  - CHOLECYSTITIS ACUTE [None]
  - MYOCARDIAL INFARCTION [None]
  - HYPERTENSION [None]
  - HYPOKALAEMIA [None]
  - NAUSEA [None]
  - HYPERCHOLESTEROLAEMIA [None]
